FAERS Safety Report 24122993 (Version 1)
Quarter: 2024Q3

REPORT INFORMATION
  Report Type: Spontaneous
  Country: IT (occurrence: IT)
  Receive Date: 20240723
  Receipt Date: 20240723
  Transmission Date: 20241016
  Serious: Yes (Other)
  Sender: AUROBINDO
  Company Number: IT-MINISAL02-994418

PATIENT
  Age: 60 Year
  Sex: Male

DRUGS (3)
  1. OXALIPLATIN [Suspect]
     Active Substance: OXALIPLATIN
     Indication: Cholangiocarcinoma
     Dosage: 81 MILLIGRAM (81 MILLIGRAMS EVERY 14 DAYS)
     Route: 042
     Dates: start: 20220505, end: 20220505
  2. FLUOROURACIL [Suspect]
     Active Substance: FLUOROURACIL
     Indication: Cholangiocarcinoma
     Dosage: 384 MILLIGRAM (384MG/EV (BOLUS) EVERY 14 DAYS)
     Route: 042
     Dates: start: 20220505, end: 20220505
  3. FLUOROURACIL [Suspect]
     Active Substance: FLUOROURACIL
     Dosage: 2304 MILLIGRAM (2304MG/EV EVERY 14 DAYS))
     Route: 042
     Dates: start: 20220505, end: 20220505

REACTIONS (2)
  - Neutropenia [Recovering/Resolving]
  - Off label use [Recovering/Resolving]

NARRATIVE: CASE EVENT DATE: 20220505
